FAERS Safety Report 7505660-4 (Version None)
Quarter: 2011Q2

REPORT INFORMATION
  Report Type: 
  Country: None (occurrence: None)
  Receive Date: 20110526
  Receipt Date: 20110520
  Transmission Date: 20111010
  Serious: Yes (Death, Other)
  Sender: FDA-Public Use
  Company Number: US-SANOFI-AVENTIS-2011SA032284

PATIENT
  Sex: Male

DRUGS (1)
  1. JEVTANA KIT [Suspect]
     Route: 041
     Dates: start: 20101201, end: 20101201

REACTIONS (2)
  - TUMOUR LYSIS SYNDROME [None]
  - DEATH [None]
